FAERS Safety Report 8075556-0 (Version None)
Quarter: 2012Q1

REPORT INFORMATION
  Report Type: 
  Country: None (occurrence: None)
  Receive Date: 20120127
  Receipt Date: 20120125
  Transmission Date: 20120608
  Serious: Yes (Death)
  Sender: FDA-Public Use
  Company Number: US-BRISTOL-MYERS SQUIBB COMPANY-16367252

PATIENT
  Age: 76 Year
  Sex: Male

DRUGS (13)
  1. ADVAIR DISKUS 100/50 [Concomitant]
  2. PROVENTIL [Concomitant]
  3. NYSTATIN [Concomitant]
  4. VALACYCLOVIR [Concomitant]
  5. ALBUTEROL [Concomitant]
  6. DIGOXIN [Concomitant]
  7. LOVASTATIN [Concomitant]
  8. SPIRIVA [Concomitant]
  9. SULFAMETHOXAZOLE [Concomitant]
  10. LOMOTIL [Concomitant]
  11. SPRYCEL [Suspect]
     Indication: ACUTE LYMPHOCYTIC LEUKAEMIA
     Dates: start: 20120101
  12. METOPROLOL TARTRATE [Concomitant]
  13. POTASSIUM CHLORIDE [Concomitant]

REACTIONS (1)
  - DEATH [None]
